FAERS Safety Report 9887405 (Version 1)
Quarter: 2014Q1

REPORT INFORMATION
  Report Type: Spontaneous
  Country: US (occurrence: None)
  Receive Date: 20140207
  Receipt Date: 20140207
  Transmission Date: 20141002
  Serious: Yes (Other)
  Sender: FDA-Public Use
  Company Number: None

PATIENT
  Age: 1 Day
  Sex: Male
  Weight: 3.3 kg

DRUGS (11)
  1. ZANAFLEX [Suspect]
     Indication: INSOMNIA
     Route: 048
     Dates: start: 20110101, end: 20140201
  2. ZANAFLEX [Suspect]
     Indication: FIBROMYALGIA
     Route: 048
     Dates: start: 20110101, end: 20140201
  3. ZANAFLEX [Suspect]
     Indication: OCCIPITAL NEURALGIA
     Route: 048
     Dates: start: 20110101, end: 20140201
  4. TRAZADONE [Suspect]
     Indication: INSOMNIA
     Route: 048
     Dates: start: 20130101, end: 20140201
  5. TRAZADONE [Suspect]
     Indication: ANXIETY
     Route: 048
     Dates: start: 20130101, end: 20140201
  6. FIORICET [Concomitant]
  7. INSULIN NPH [Concomitant]
  8. PHENERGAN [Concomitant]
  9. OXYTOCIN [Concomitant]
  10. ERYTHROMYCIN [Concomitant]
  11. PHOTOTHERAPY VIA BILISOFT BLANKET [Concomitant]

REACTIONS (6)
  - Caesarean section [None]
  - Heart rate decreased [None]
  - Electrocardiogram QT prolonged [None]
  - Electrocardiogram T wave abnormal [None]
  - Maternal drugs affecting foetus [None]
  - Exposure during breast feeding [None]
